FAERS Safety Report 11587859 (Version 3)
Quarter: 2015Q4

REPORT INFORMATION
  Report Type: Report from Study
  Country: PL (occurrence: PL)
  Receive Date: 20151001
  Receipt Date: 20151118
  Transmission Date: 20160304
  Serious: Yes (Other)
  Sender: FDA-Public Use
  Company Number: PHHY2015PL117146

PATIENT
  Age: 65 Year
  Sex: Female

DRUGS (7)
  1. VITAMIN D3 [Concomitant]
     Active Substance: CHOLECALCIFEROL
     Indication: PRODUCT USED FOR UNKNOWN INDICATION
     Route: 065
  2. SANDOSTATIN LAR DEPOT [Suspect]
     Active Substance: OCTREOTIDE ACETATE
     Dosage: 40 MG
     Route: 065
     Dates: start: 201402
  3. SANDOSTATIN LAR DEPOT [Suspect]
     Active Substance: OCTREOTIDE ACETATE
     Dosage: 30 MG, QMO (EVERY 28 DAYS)
     Route: 065
     Dates: end: 201301
  4. LANREOTIDE [Suspect]
     Active Substance: LANREOTIDE
     Indication: ACROMEGALY
     Dosage: 120 MG, EVERY 28 DAYS
     Route: 058
     Dates: start: 201301, end: 2014
  5. LETROX [Concomitant]
     Indication: SECONDARY HYPOTHYROIDISM
     Dosage: 25 UG
     Route: 048
  6. SANDOSTATIN LAR DEPOT [Suspect]
     Active Substance: OCTREOTIDE ACETATE
     Indication: ACROMEGALY
     Dosage: 30 MG, QMO (EVERY 28 DAYS)
     Route: 065
     Dates: start: 2005, end: 2006
  7. BROMOCRIPTINE [Concomitant]
     Active Substance: BROMOCRIPTINE
     Indication: PRODUCT USED FOR UNKNOWN INDICATION
     Dosage: 2.5 MG
     Route: 048

REACTIONS (13)
  - Degenerative aortic valve disease [Unknown]
  - Nervous system disorder [Unknown]
  - Cardiac failure congestive [Unknown]
  - Neuralgia [Unknown]
  - Cardiovascular disorder [Unknown]
  - Gastrointestinal disorder [Unknown]
  - Diverticulum intestinal [Unknown]
  - Drug ineffective [Unknown]
  - Hypothalamo-pituitary disorder [Unknown]
  - Acute sinusitis [Unknown]
  - Aortic arteriosclerosis [Unknown]
  - Humerus fracture [Unknown]
  - Arthropathy [Unknown]
